FAERS Safety Report 23428199 (Version 3)
Quarter: 2024Q1

REPORT INFORMATION
  Report Type: Spontaneous
  Country: US (occurrence: US)
  Receive Date: 20240122
  Receipt Date: 20240311
  Transmission Date: 20240410
  Serious: Yes (Hospitalization, Other)
  Sender: FDA-Public Use
  Company Number: US-TAKEDA-2024TUS005392

PATIENT
  Sex: Female

DRUGS (3)
  1. GAMMAGARD LIQUID [Suspect]
     Active Substance: HUMAN IMMUNOGLOBULIN G
     Indication: Product used for unknown indication
     Dosage: 40 MILLIGRAM
     Route: 065
  2. DUPIXENT [Suspect]
     Active Substance: DUPILUMAB
     Indication: Asthma
     Dosage: 300 MILLIGRAM, Q2WEEKS
     Route: 058
  3. DUPIXENT [Suspect]
     Active Substance: DUPILUMAB
     Indication: Chronic inflammatory demyelinating polyradiculoneuropathy

REACTIONS (35)
  - Mast cell activation syndrome [Unknown]
  - Haemoglobin decreased [Unknown]
  - Hyperaesthesia [Unknown]
  - Musculoskeletal stiffness [Unknown]
  - Spinal pain [Unknown]
  - Neck pain [Unknown]
  - Meningitis aseptic [Unknown]
  - Platelet count decreased [Unknown]
  - Dyspnoea [Unknown]
  - Hot flush [Unknown]
  - Urticaria [Unknown]
  - Diarrhoea [Unknown]
  - Pyrexia [Unknown]
  - Muscle spasms [Unknown]
  - Haematocrit decreased [Unknown]
  - Tremor [Unknown]
  - Nausea [Unknown]
  - Headache [Unknown]
  - Loss of consciousness [Unknown]
  - Impaired gastric emptying [Unknown]
  - Respiratory tract congestion [Unknown]
  - Respiratory disorder [Unknown]
  - Pain of skin [Unknown]
  - Throat irritation [Unknown]
  - Throat tightness [Unknown]
  - Vision blurred [Unknown]
  - Infusion site haemorrhage [Unknown]
  - Asthma [Unknown]
  - Vomiting [Unknown]
  - Fatigue [Unknown]
  - Pain [Unknown]
  - Decreased appetite [Unknown]
  - Back pain [Unknown]
  - Migraine [Unknown]
  - Pruritus [Unknown]
